FAERS Safety Report 4359910-6 (Version None)
Quarter: 2004Q2

REPORT INFORMATION
  Report Type: 
  Country: None (occurrence: None)
  Receive Date: 20040518
  Receipt Date: 20040505
  Transmission Date: 20050107
  Serious: Yes (Other)
  Sender: FDA-Public Use
  Company Number: PHBS2004GB06168

PATIENT
  Age: 52 Year
  Sex: Male

DRUGS (5)
  1. CYCLOSPORINE [Suspect]
     Indication: PSORIASIS
     Dosage: UNK, UNK
     Route: 065
  2. CYCLOSPORINE [Suspect]
     Dosage: UNK, UNK
     Route: 065
     Dates: start: 19990101
  3. STEROIDS NOS [Concomitant]
     Route: 061
     Dates: start: 19990101
  4. TACALCITOL [Concomitant]
     Dates: start: 19990101
  5. HYDROXYUREA [Concomitant]
     Dates: start: 19990101

REACTIONS (5)
  - BLOOD CREATININE INCREASED [None]
  - BONE MARROW DEPRESSION [None]
  - HYPERCALCAEMIA [None]
  - HYPERTENSION [None]
  - RENAL IMPAIRMENT [None]
